FAERS Safety Report 9878958 (Version 1)
Quarter: 2014Q1

REPORT INFORMATION
  Report Type: Spontaneous
  Country: US (occurrence: US)
  Receive Date: 20140206
  Receipt Date: 20140206
  Transmission Date: 20141002
  Serious: Yes (Hospitalization, Other)
  Sender: FDA-Public Use
  Company Number: US-ROXANE LABORATORIES, INC.-2014-RO-00150RO

PATIENT
  Age: 66 Year
  Sex: Male

DRUGS (7)
  1. PREDNISONE [Suspect]
     Indication: HEART TRANSPLANT
     Dosage: 20 MG
  2. MYFORTIC [Suspect]
     Indication: HEART TRANSPLANT
     Dosage: 360 MG
  3. PROGRAF [Suspect]
     Indication: HEART TRANSPLANT
     Dosage: 1.5 MG
  4. POSACONAZOLE [Suspect]
     Indication: PRODUCT USED FOR UNKNOWN INDICATION
     Dosage: 20 MG
  5. BRIMONIDINE [Suspect]
     Indication: PRODUCT USED FOR UNKNOWN INDICATION
     Route: 031
  6. PRED FORTE [Suspect]
     Indication: PRODUCT USED FOR UNKNOWN INDICATION
     Route: 031
  7. GANCICLOVIR [Concomitant]
     Indication: CYTOMEGALOVIRUS CHORIORETINITIS
     Route: 031

REACTIONS (3)
  - Nocardiosis [Recovered/Resolved]
  - Endophthalmitis [Recovered/Resolved]
  - Retinal detachment [Recovered/Resolved]
